FAERS Safety Report 23646994 (Version 1)
Quarter: 2024Q1

REPORT INFORMATION
  Report Type: Report from Study
  Country: CO (occurrence: CO)
  Receive Date: 20240319
  Receipt Date: 20240319
  Transmission Date: 20240410
  Serious: Yes (Hospitalization)
  Sender: FDA-Public Use
  Company Number: CO-ABBVIE-5682994

PATIENT
  Age: 15 Year
  Sex: Female
  Weight: 55 kg

DRUGS (1)
  1. HUMIRA [Suspect]
     Active Substance: ADALIMUMAB
     Indication: Juvenile idiopathic arthritis
     Dosage: FORM STRENGTH: 40 MG
     Route: 058
     Dates: start: 20231020, end: 20240220

REACTIONS (7)
  - Arthralgia [Not Recovered/Not Resolved]
  - Polyarthritis [Not Recovered/Not Resolved]
  - Dysgraphia [Unknown]
  - Gait disturbance [Unknown]
  - Back pain [Not Recovered/Not Resolved]
  - Mobility decreased [Not Recovered/Not Resolved]
  - Drug effect less than expected [Unknown]

NARRATIVE: CASE EVENT DATE: 20240305
